FAERS Safety Report 4330739-8 (Version None)
Quarter: 2004Q1

REPORT INFORMATION
  Report Type: 
  Country: None (occurrence: None)
  Receive Date: 20040331
  Receipt Date: 20040316
  Transmission Date: 20041129
  Serious: Yes (Hospitalization)
  Sender: FDA-Public Use
  Company Number: A02200400977

PATIENT
  Age: 50 Year
  Sex: Male

DRUGS (10)
  1. STILNOX - (ZOLPIDEM) - TABLET - 10 MG [Suspect]
     Indication: SLEEP DISORDER
     Dosage: ORAL
     Route: 048
  2. PURINETHOL - (MERCAPTOPURINE)  - TABLET - 50 MG [Suspect]
     Dosage: 75 MG QD, ORAL
     Route: 048
  3. METHOTREXATE [Suspect]
     Dosage: 15 MG 1/WEEK, ORAL
     Route: 048
     Dates: end: 20040211
  4. NVESANOID - (TRETINOIN) - CAPSULE - 10 MG [Suspect]
     Dosage: 15 MG 1/WEEK, FOR 15 DAYS EVERY 3 MONTHS, ORAL
     Route: 048
     Dates: end: 20040213
  5. DEBRIDAT (TRIMEBUTINE MALEATE) [Concomitant]
  6. LANSOYL (PARAFFIN, LIQUID) [Concomitant]
  7. OGAST (LANSOPRAZOLE) [Concomitant]
  8. PAROXETINE HCL [Concomitant]
  9. DITROPAN [Concomitant]
  10. KARAYAL [Concomitant]

REACTIONS (1)
  - INTERSTITIAL LUNG DISEASE [None]
